FAERS Safety Report 7708770-1 (Version None)
Quarter: 2011Q3

REPORT INFORMATION
  Report Type: 
  Country: None (occurrence: None)
  Receive Date: 20110825
  Receipt Date: 20110815
  Transmission Date: 20111222
  Serious: Yes (Other)
  Sender: FDA-Public Use
  Company Number: CA-BAYER-2011-063361

PATIENT
  Sex: Male

DRUGS (2)
  1. KOGENATE [Suspect]
     Indication: HAEMOPHILIA
     Route: 040
  2. KOGENATE [Suspect]
     Indication: PROPHYLAXIS

REACTIONS (2)
  - FACTOR VIII INHIBITION [None]
  - HAEMARTHROSIS [None]
